FAERS Safety Report 7926943-X (Version None)
Quarter: 2011Q4

REPORT INFORMATION
  Report Type: 
  Country: None (occurrence: None)
  Receive Date: 20111118
  Receipt Date: 20111115
  Transmission Date: 20120403
  Serious: Yes (Hospitalization)
  Sender: FDA-Public Use
  Company Number: US-PFIZER INC-2011200333

PATIENT
  Sex: Female
  Weight: 83.9 kg

DRUGS (9)
  1. ACETAMINOPHEN [Concomitant]
     Dosage: 325 MG, UNK
  2. CENTRUM SILVER [Concomitant]
     Dosage: UNK
  3. LEVOTHYROXINE [Concomitant]
     Dosage: 100 UG, UNK
  4. PROCHLORPERAZINE [Concomitant]
     Dosage: 5 MG, UNK
  5. SUTENT [Suspect]
     Indication: RENAL CELL CARCINOMA
     Dosage: 50 MG, 1 CAPSULE EVERY DAY FOR 4 WEEKS ON, 2 WEEKS OFF X 2 CYCLES
     Route: 048
     Dates: start: 20110622, end: 20110901
  6. NORVASC [Concomitant]
     Indication: HYPERTENSION
     Dosage: 2.5 MG, UNK
     Dates: start: 20110720
  7. PERCOCET [Concomitant]
     Dosage: 2.5-325
  8. EFFEXOR [Concomitant]
     Indication: DEPRESSION
     Dosage: 75 MG, UNK
     Dates: start: 20110701
  9. CLONIDINE [Concomitant]
     Indication: HYPERTENSION
     Dosage: UNK
     Dates: start: 20110809

REACTIONS (6)
  - ASTHENIA [None]
  - MUSCULAR WEAKNESS [None]
  - NAUSEA [None]
  - HEADACHE [None]
  - RENAL FAILURE ACUTE [None]
  - TREMOR [None]
